FAERS Safety Report 14066063 (Version 1)
Quarter: 2017Q4

REPORT INFORMATION
  Report Type: Spontaneous
  Country: IN (occurrence: IN)
  Receive Date: 20171010
  Receipt Date: 20171010
  Transmission Date: 20180321
  Serious: Yes (Other)
  Sender: FDA-Public Use
  Company Number: IN-SUN PHARMACEUTICAL INDUSTRIES LTD-2017R1-151813

PATIENT
  Sex: Female

DRUGS (3)
  1. TRAMADOL. [Suspect]
     Active Substance: TRAMADOL
     Indication: PROCEDURAL PAIN
     Dosage: 5-6 INJECTIONS PER DAY
     Route: 030
  2. TRAMADOL. [Suspect]
     Active Substance: TRAMADOL
     Dosage: 100 MG, BID
     Route: 030
  3. TRAMADOL. [Suspect]
     Active Substance: TRAMADOL
     Dosage: BID
     Route: 030

REACTIONS (7)
  - Prescription drug used without a prescription [Unknown]
  - Drug dependence [Recovering/Resolving]
  - Drug tolerance [Unknown]
  - Injection site swelling [Unknown]
  - Injection site abscess [Unknown]
  - Drug withdrawal syndrome [Recovering/Resolving]
  - Drug abuse [Unknown]
